FAERS Safety Report 8582360-3 (Version None)
Quarter: 2012Q3

REPORT INFORMATION
  Report Type: 
  Country: None (occurrence: None)
  Receive Date: 20120809
  Receipt Date: 20120806
  Transmission Date: 20120928
  Serious: Yes (Hospitalization)
  Sender: FDA-Public Use
  Company Number: US-GLAXOSMITHKLINE-A0606510A

PATIENT
  Sex: Female

DRUGS (1)
  1. PAXIL [Suspect]
     Indication: CARDIAC DISORDER
     Route: 048
     Dates: start: 20030101, end: 20060414

REACTIONS (9)
  - PARAESTHESIA [None]
  - GAIT DISTURBANCE [None]
  - TENSION HEADACHE [None]
  - VISION BLURRED [None]
  - ATRIAL FIBRILLATION [None]
  - NAUSEA [None]
  - WITHDRAWAL SYNDROME [None]
  - SOMNOLENCE [None]
  - HEADACHE [None]
